FAERS Safety Report 21802870 (Version 1)
Quarter: 2022Q4

REPORT INFORMATION
  Report Type: Report from Study
  Country: US (occurrence: US)
  Receive Date: 20221231
  Receipt Date: 20221231
  Transmission Date: 20230113
  Serious: No
  Sender: FDA-Public Use
  Company Number: US-ACORDA-ACO_173520_2022

PATIENT
  Age: 69 Year
  Sex: Male

DRUGS (5)
  1. INBRIJA [Suspect]
     Active Substance: LEVODOPA
     Indication: Parkinson^s disease
     Dosage: 2 DOSAGE FORM (84 MG), PRN, NOT TO EXCEED 5 DOSES PER DAY
     Dates: start: 20220917
  2. INBRIJA [Suspect]
     Active Substance: LEVODOPA
     Indication: On and off phenomenon
     Dosage: 2 DOSAGE FORM (84 MG), PRN, NOT TO EXCEED 5 DOSES PER DAY
     Dates: start: 20220917
  3. INBRIJA [Suspect]
     Active Substance: LEVODOPA
     Dosage: 2 DOSAGE FORM (84 MG), PRN, NOT TO EXCEED 5 DOSES PER DAY
     Dates: start: 20220917
  4. CARBIDOPA\LEVODOPA [Concomitant]
     Active Substance: CARBIDOPA\LEVODOPA
     Indication: Product used for unknown indication
     Dosage: 25/100 MG, 2 DOSAGE FORM (PILLS), QID
     Route: 065
  5. CARBIDOPA\LEVODOPA [Concomitant]
     Active Substance: CARBIDOPA\LEVODOPA
     Dosage: ER 25/100MG, 1 DOSAGE FORM (PILL), @11 PM
     Route: 065

REACTIONS (1)
  - Cough [Not Recovered/Not Resolved]

NARRATIVE: CASE EVENT DATE: 20220917
